FAERS Safety Report 8895966 (Version 6)
Quarter: 2013Q2

REPORT INFORMATION
  Report Type: Spontaneous
  Country: US (occurrence: US)
  Receive Date: 20121107
  Receipt Date: 20130423
  Transmission Date: 20140414
  Serious: Yes (Hospitalization, Disabling, Other)
  Sender: FDA-Public Use
  Company Number: US-009507513-1210USA012662

PATIENT
  Sex: Female
  Weight: 101.59 kg

DRUGS (2)
  1. FOSAMAX [Suspect]
     Indication: OSTEOPOROSIS
     Dosage: 70 MG, UNK
     Route: 048
     Dates: start: 200806, end: 201106
  2. HORMONES (UNSPECIFIED) [Concomitant]

REACTIONS (54)
  - Intramedullary rod insertion [Unknown]
  - Femur fracture [Unknown]
  - Acute respiratory failure [Unknown]
  - Open reduction of fracture [Unknown]
  - Femur fracture [Unknown]
  - Medical device removal [Unknown]
  - Low turnover osteopathy [Not Recovered/Not Resolved]
  - Incision site infection [Unknown]
  - Fracture nonunion [Unknown]
  - Chronic obstructive pulmonary disease [Unknown]
  - Cholecystectomy [Unknown]
  - Bone graft [Unknown]
  - Cellulitis [Unknown]
  - Wound dehiscence [Unknown]
  - Ecchymosis [Unknown]
  - Excoriation [Unknown]
  - Wound decomposition [Unknown]
  - Hypotension [Recovering/Resolving]
  - Sepsis [Recovering/Resolving]
  - Mental status changes [Recovering/Resolving]
  - Seroma [Unknown]
  - Fluid overload [Unknown]
  - Cardiac failure congestive [Unknown]
  - Iron deficiency anaemia [Unknown]
  - Renal failure acute [Recovering/Resolving]
  - Atelectasis [Unknown]
  - Hypoxia [Unknown]
  - Open reduction of fracture [Unknown]
  - Supraventricular tachycardia [Recovered/Resolved]
  - Procedural hypotension [Recovered/Resolved]
  - Device failure [Unknown]
  - Hip arthroplasty [Unknown]
  - Respiratory distress [Recovered/Resolved]
  - Debridement [Unknown]
  - Fat necrosis [Unknown]
  - Catheterisation cardiac [Unknown]
  - Abdominal pain upper [Unknown]
  - Diarrhoea [Unknown]
  - Femur fracture [Unknown]
  - Intervertebral disc degeneration [Unknown]
  - Stress urinary incontinence [Unknown]
  - Depression [Unknown]
  - Urine output decreased [Unknown]
  - Sinus disorder [Unknown]
  - Hysterectomy [Unknown]
  - Appendicectomy [Unknown]
  - Obesity [Unknown]
  - Gastric disorder [Unknown]
  - Anaemia postoperative [Unknown]
  - Wound infection pseudomonas [Unknown]
  - Wound infection staphylococcal [Unknown]
  - Peptic ulcer [Unknown]
  - Gastritis [Unknown]
  - Oedema peripheral [Unknown]
